FAERS Safety Report 24764207 (Version 1)
Quarter: 2024Q4

REPORT INFORMATION
  Report Type: Spontaneous
  Country: US (occurrence: US)
  Receive Date: 20241223
  Receipt Date: 20241223
  Transmission Date: 20250115
  Serious: Yes (Other)
  Sender: PIRAMAL
  Company Number: US-PIRAMAL CRITICAL CARE LIMITED-2024-PPL-000941

PATIENT

DRUGS (2)
  1. GABLOFEN [Suspect]
     Active Substance: BACLOFEN
     Indication: Product used for unknown indication
     Dosage: 700MCG/DAY
     Route: 037
  2. GABLOFEN [Suspect]
     Active Substance: BACLOFEN
     Dosage: 250MCG/DAY
     Route: 037

REACTIONS (2)
  - Wound dehiscence [Recovered/Resolved]
  - Implant site infection [Recovered/Resolved]
